FAERS Safety Report 5444509-0 (Version None)
Quarter: 2007Q3

REPORT INFORMATION
  Report Type: 
  Country: None (occurrence: None)
  Receive Date: 20070904
  Receipt Date: 20070904
  Transmission Date: 20080115
  Serious: Yes (Hospitalization, Other)
  Sender: FDA-Public Use
  Company Number: None

PATIENT
  Age: 89 Year
  Sex: Female
  Weight: 40.9 kg

DRUGS (9)
  1. IOHEXOL 300 MG1/ML AMERSHAM HEALTH [Suspect]
     Indication: SCAN WITH CONTRAST
     Dosage: 100ML ONCE IV
     Route: 042
     Dates: start: 20070222, end: 20070222
  2. MANNITOL 20% [Suspect]
     Indication: BRAIN OEDEMA
     Dosage: 40GM EVERY 8 HOURS IV
     Route: 042
     Dates: start: 20070222, end: 20070226
  3. ASPIRIN [Concomitant]
  4. SOTOLOL [Concomitant]
  5. SIMVASTATIN [Concomitant]
  6. MIRTAZAPINE [Concomitant]
  7. OSCAL [Concomitant]
  8. ESOMEPRAZOLE MAGNESIUM [Concomitant]
  9. DEXAMETHASONE 0.5MG TAB [Concomitant]

REACTIONS (3)
  - CONTRAST MEDIA REACTION [None]
  - NEPHROPATHY [None]
  - RENAL FAILURE ACUTE [None]
